FAERS Safety Report 7020710-X (Version None)
Quarter: 2010Q3

REPORT INFORMATION
  Report Type: 
  Country: None (occurrence: None)
  Receive Date: 20100929
  Receipt Date: 20100922
  Transmission Date: 20110219
  Serious: Yes (Hospitalization, Other)
  Sender: FDA-Public Use
  Company Number: PHFR2010GB03072

PATIENT
  Sex: Female

DRUGS (7)
  1. CLOZARIL [Suspect]
     Indication: SCHIZOPHRENIA
     Dosage: 450 MG DAILY NOCTE
     Route: 048
     Dates: start: 20091211
  2. LITHIUM [Concomitant]
     Indication: WHITE BLOOD CELL COUNT INCREASED
     Dosage: 400 MG
     Route: 048
  3. TOPIRAMATE [Concomitant]
     Indication: AFFECTIVE DISORDER
     Dosage: 150 MG
     Route: 048
  4. ARIPIPRAZOLE [Concomitant]
     Indication: WEIGHT INCREASED
     Dosage: 5 MG
     Route: 048
  5. DULOXETINE [Concomitant]
     Indication: ANTIDEPRESSANT THERAPY
     Dosage: 30 MG
     Route: 048
  6. TEMAZEPAM [Concomitant]
     Indication: INSOMNIA
     Dosage: 20 MG
     Route: 048
  7. HYOSCINE [Concomitant]
     Indication: SALIVARY HYPERSECRETION
     Dosage: 300 UG, TID
     Route: 048

REACTIONS (5)
  - AFFECT LABILITY [None]
  - INTENTIONAL SELF-INJURY [None]
  - INTERNATIONAL NORMALISED RATIO ABNORMAL [None]
  - POISONING DELIBERATE [None]
  - SUICIDAL IDEATION [None]
